FAERS Safety Report 23375532 (Version 2)
Quarter: 2024Q1

REPORT INFORMATION
  Report Type: Report from Study
  Country: US (occurrence: US)
  Receive Date: 20240107
  Receipt Date: 20240311
  Transmission Date: 20240409
  Serious: Yes (Other)
  Sender: FDA-Public Use
  Company Number: US-002147023-NVSC2023US276535

PATIENT
  Sex: Female

DRUGS (1)
  1. COSENTYX [Suspect]
     Active Substance: SECUKINUMAB
     Indication: Arthritis
     Dosage: 300 MG
     Route: 065

REACTIONS (3)
  - Autoimmune disorder [Unknown]
  - Nasopharyngitis [Recovering/Resolving]
  - Cough [Unknown]
